FAERS Safety Report 5702816-8 (Version None)
Quarter: 2008Q2

REPORT INFORMATION
  Report Type: 
  Country: None (occurrence: None)
  Receive Date: 20080410
  Receipt Date: 20080410
  Transmission Date: 20081010
  Serious: Yes (Hospitalization)
  Sender: FDA-Public Use
  Company Number: None

PATIENT
  Age: 67 Year
  Sex: Male
  Weight: 111.1313 kg

DRUGS (1)
  1. TARGRETIN [Suspect]
     Dosage: 675 MG  ONCE DAILY PO
     Route: 048
     Dates: start: 20080402, end: 20080403

REACTIONS (3)
  - CHILLS [None]
  - NAUSEA [None]
  - VOMITING [None]
